FAERS Safety Report 20430540 (Version 1)
Quarter: 2022Q1

REPORT INFORMATION
  Report Type: Report from Study
  Country: FR (occurrence: FR)
  Receive Date: 20220204
  Receipt Date: 20220204
  Transmission Date: 20220423
  Serious: Yes (Hospitalization)
  Sender: FDA-Public Use
  Company Number: FR-SERVIER-S20010943

PATIENT

DRUGS (8)
  1. PEGASPARGASE [Suspect]
     Active Substance: PEGASPARGASE
     Indication: Acute lymphocytic leukaemia
     Dosage: 2450 IU, QD  ON D12
     Route: 042
     Dates: start: 20200908
  2. TN UNSPECIFIED [Concomitant]
     Indication: Acute lymphocytic leukaemia
     Dosage: 1.4 MG (D8, D15, D22, D29)
     Route: 042
     Dates: start: 20200904
  3. TN UNSPECIFIED [Concomitant]
     Indication: Acute lymphocytic leukaemia
     Dosage: 29.4 MG (D8, D15, D22, D29)
     Route: 042
     Dates: start: 20200904
  4. TN UNSPECIFIED [Concomitant]
     Indication: Acute lymphocytic leukaemia
     Dosage: 15 MG (D13, D24)
     Route: 037
     Dates: start: 20200827
  5. TN UNSPECIFIED [Concomitant]
     Indication: Acute lymphocytic leukaemia
     Dosage: 30 MG (D13, D24)
     Route: 037
     Dates: start: 20200909
  6. TN UNSPECIFIED [Concomitant]
     Indication: Acute lymphocytic leukaemia
     Dosage: 15 MG (D13, D24)
     Route: 037
     Dates: start: 20200909
  7. TN UNSPECIFIED [Concomitant]
     Dosage: 60 MG (D1 TO D28)
     Route: 048
     Dates: start: 20200904, end: 20200924
  8. TN UNSPECIFIED [Concomitant]
     Indication: Acute lymphocytic leukaemia
     Dosage: 15 MG, ACCORDING TO PROTOCOL
     Route: 037

REACTIONS (1)
  - Generalised tonic-clonic seizure [Recovered/Resolved]

NARRATIVE: CASE EVENT DATE: 20201003
